FAERS Safety Report 8679516 (Version 3)
Quarter: 2012Q4

REPORT INFORMATION
  Report Type: 
  Country: US (occurrence: US)
  Receive Date: 20120724
  Receipt Date: 20120918
  Transmission Date: 20130627
  Serious: No
  Sender: FDA-Public Use
  Company Number: US-BAYER-2012-073513

PATIENT
  Age: 37 Year
  Sex: Female
  Weight: 92.97 kg

DRUGS (2)
  1. MIRENA [Suspect]
     Indication: MENORRHAGIA
     Dosage: 20 mcg/24hr, CONT
     Route: 015
     Dates: start: 201203, end: 20120716
  2. MIRENA [Suspect]
     Indication: CONTRACEPTION

REACTIONS (2)
  - Device expulsion [Recovered/Resolved]
  - Menorrhagia [None]
